FAERS Safety Report 6318033-7 (Version None)
Quarter: 2009Q3

REPORT INFORMATION
  Report Type: 
  Country: None (occurrence: None)
  Receive Date: 20090821
  Receipt Date: 20090812
  Transmission Date: 20100115
  Serious: Yes (Other)
  Sender: FDA-Public Use
  Company Number: JP-PFIZER INC-2009256482

PATIENT
  Age: 75 Year

DRUGS (2)
  1. SOLANAX [Suspect]
     Dosage: FREQUENCY: 2X/DAY,
  2. NITROPEN [Concomitant]
     Dosage: 0.4 MG, 2X/DAY
     Route: 048

REACTIONS (3)
  - CONSTIPATION [None]
  - DEMENTIA [None]
  - MEMORY IMPAIRMENT [None]
